FAERS Safety Report 25787739 (Version 1)
Quarter: 2025Q3

REPORT INFORMATION
  Report Type: Spontaneous
  Country: EU (occurrence: EU)
  Receive Date: 20250910
  Receipt Date: 20250910
  Transmission Date: 20251020
  Serious: Yes (Other)
  Sender: AMGEN
  Company Number: EU-AMGEN-DEUSP2025174937

PATIENT
  Sex: Male

DRUGS (1)
  1. ARANESP [Suspect]
     Active Substance: DARBEPOETIN ALFA
     Indication: Product used for unknown indication
     Route: 065

REACTIONS (12)
  - Immunodeficiency [Unknown]
  - Drug ineffective [Unknown]
  - Pain [Unknown]
  - Muscle spasms [Unknown]
  - Tendon pain [Unknown]
  - Loss of personal independence in daily activities [Unknown]
  - Sneezing [Unknown]
  - Mobility decreased [Unknown]
  - Ill-defined disorder [Unknown]
  - Pain in extremity [Unknown]
  - Fall [Unknown]
  - Myalgia [Unknown]

NARRATIVE: CASE EVENT DATE: 20250830
